FAERS Safety Report 6384675-6 (Version None)
Quarter: 2009Q3

REPORT INFORMATION
  Report Type: 
  Country: None (occurrence: None)
  Receive Date: 20090928
  Receipt Date: 20090918
  Transmission Date: 20100115
  Serious: Yes (Hospitalization)
  Sender: FDA-Public Use
  Company Number: 2009SP026249

PATIENT
  Age: 86 Year
  Sex: Female

DRUGS (14)
  1. ORGARAN [Suspect]
     Indication: THROMBOCYTOPENIA
     Dosage: 750 IU;BID;SC
     Route: 058
     Dates: start: 20090829
  2. OXYCONTIN [Suspect]
     Indication: DRUG USE FOR UNKNOWN INDICATION
  3. TRIATEC [Concomitant]
  4. ESIDRIX [Concomitant]
  5. AERIUS [Concomitant]
  6. KARDEGIC [Concomitant]
  7. ATARAX [Concomitant]
  8. INSULIN NOVOMIX [Concomitant]
  9. INIPOMP [Concomitant]
  10. ACETAMINOPHEN [Concomitant]
  11. STILNOX [Concomitant]
  12. OXYCODONE HCL [Suspect]
     Indication: DRUG USE FOR UNKNOWN INDICATION
  13. TARGOCID [Suspect]
     Indication: DRUG USE FOR UNKNOWN INDICATION
  14. TAZOCILLINE (PIP/TAZO) [Suspect]
     Indication: DRUG USE FOR UNKNOWN INDICATION

REACTIONS (1)
  - TOXIC SKIN ERUPTION [None]
